FAERS Safety Report 5460873-0 (Version None)
Quarter: 2007Q3

REPORT INFORMATION
  Report Type: 
  Country: None (occurrence: None)
  Receive Date: 20070824
  Receipt Date: 20070202
  Transmission Date: 20080115
  Serious: Yes (Other)
  Sender: FDA-Public Use
  Company Number: 2007SP002325

PATIENT
  Age: 71 Year
  Sex: Male
  Weight: 89.3586 kg

DRUGS (6)
  1. PROVENTIL-HFA [Suspect]
     Indication: ASTHMA
     Dosage: 90 MCG;QID;PO
     Route: 048
     Dates: start: 20060901, end: 20061230
  2. PROVENTIL-HFA [Suspect]
     Indication: CHRONIC OBSTRUCTIVE PULMONARY DISEASE
     Dosage: 90 MCG;QID;PO
     Route: 048
     Dates: start: 20060901, end: 20061230
  3. PROVENTIL-HFA [Suspect]
     Indication: ASTHMA
     Dosage: 90 MCG;QID;PO
     Route: 048
     Dates: start: 20070319
  4. PROVENTIL-HFA [Suspect]
     Indication: CHRONIC OBSTRUCTIVE PULMONARY DISEASE
     Dosage: 90 MCG;QID;PO
     Route: 048
     Dates: start: 20070319
  5. PROVENTIL-HFA [Suspect]
  6. COMBIVENT (PREV.) [Concomitant]

REACTIONS (4)
  - ASTHENIA [None]
  - CARDIAC FAILURE [None]
  - DYSPNOEA [None]
  - THERAPEUTIC PRODUCT INEFFECTIVE [None]
